FAERS Safety Report 6266521-4 (Version None)
Quarter: 2009Q3

REPORT INFORMATION
  Report Type: 
  Country: None (occurrence: None)
  Receive Date: 20090710
  Receipt Date: 20090624
  Transmission Date: 20100115
  Serious: Yes (Disabling, Other)
  Sender: FDA-Public Use
  Company Number: 2004014973

PATIENT
  Sex: Female

DRUGS (7)
  1. ZYRTEC [Suspect]
     Indication: DRUG USE FOR UNKNOWN INDICATION
  2. SERTRALINE HYDROCHLORIDE [Suspect]
     Indication: DRUG USE FOR UNKNOWN INDICATION
  3. VALDECOXIB [Concomitant]
  4. CELECOXIB [Suspect]
     Indication: DRUG USE FOR UNKNOWN INDICATION
  5. GABAPENTIN [Suspect]
     Indication: DRUG USE FOR UNKNOWN INDICATION
  6. ATORVASTATIN CALCIUM [Suspect]
     Indication: DRUG USE FOR UNKNOWN INDICATION
  7. GLIPIZIDE [Suspect]
     Indication: DRUG USE FOR UNKNOWN INDICATION

REACTIONS (22)
  - ABDOMINAL HERNIA [None]
  - BRAIN INJURY [None]
  - COMA [None]
  - DIABETES MELLITUS [None]
  - DYSGRAPHIA [None]
  - ECONOMIC PROBLEM [None]
  - FALL [None]
  - GANGRENE [None]
  - INCORRECT DOSE ADMINISTERED [None]
  - LOCALISED INTRAABDOMINAL FLUID COLLECTION [None]
  - MENTAL IMPAIRMENT [None]
  - NERVOUS SYSTEM DISORDER [None]
  - PAIN [None]
  - POST PROCEDURAL INFECTION [None]
  - READING DISORDER [None]
  - RESUSCITATION [None]
  - STAPHYLOCOCCAL INFECTION [None]
  - TREATMENT NONCOMPLIANCE [None]
  - UMBILICAL HERNIA [None]
  - WEIGHT INCREASED [None]
  - WHEELCHAIR USER [None]
  - WRONG TECHNIQUE IN DRUG USAGE PROCESS [None]
